FAERS Safety Report 5535789-1 (Version None)
Quarter: 2007Q4

REPORT INFORMATION
  Report Type: 
  Country: None (occurrence: None)
  Receive Date: 20071206
  Receipt Date: 20071127
  Transmission Date: 20080405
  Serious: Yes (Other)
  Sender: FDA-Public Use
  Company Number: US-MERCK-0711USA05085

PATIENT
  Age: 78 Year
  Sex: Female

DRUGS (11)
  1. DECADRON [Suspect]
     Indication: MULTIPLE MYELOMA
     Route: 048
     Dates: start: 20070301
  2. THALOMID [Suspect]
     Indication: MULTIPLE MYELOMA
     Route: 048
     Dates: start: 20070301, end: 20070413
  3. THALOMID [Suspect]
     Route: 048
     Dates: start: 20070430
  4. ALLEGRA [Concomitant]
     Indication: HYPERSENSITIVITY
     Route: 065
  5. HYDROCODONE BITARTRATE [Concomitant]
     Indication: PAIN
     Route: 065
  6. PREDNISONE [Concomitant]
     Indication: RHEUMATOID ARTHRITIS
     Route: 065
  7. NEXIUM [Concomitant]
     Indication: DYSPEPSIA
     Route: 065
  8. CALCIUM (UNSPECIFIED) [Concomitant]
     Route: 065
  9. IMURAN [Concomitant]
     Indication: ARTHRITIS
     Route: 065
  10. LOTENSIN [Concomitant]
     Indication: HYPERTENSION
     Route: 065
  11. AMBIEN [Concomitant]
     Indication: INSOMNIA
     Route: 065

REACTIONS (1)
  - THROMBOPHLEBITIS SUPERFICIAL [None]
